FAERS Safety Report 9608204 (Version 2)
Quarter: 2013Q4

REPORT INFORMATION
  Report Type: Spontaneous
  Country: US (occurrence: US)
  Receive Date: 20131009
  Receipt Date: 20131009
  Transmission Date: 20140711
  Serious: No
  Sender: FDA-Public Use
  Company Number: US-PURDUE-USA-2012-0093342

PATIENT
  Sex: Male

DRUGS (2)
  1. BUTRANS [Suspect]
     Indication: PAIN
     Dosage: 10 MCG, WEEKLY
     Route: 062
     Dates: start: 20120531
  2. GABAPENTIN [Concomitant]
     Indication: PAIN
     Dosage: 600 MG, TID
     Route: 048
     Dates: start: 20111207

REACTIONS (2)
  - Inappropriate schedule of drug administration [Unknown]
  - Inadequate analgesia [Recovered/Resolved]
